FAERS Safety Report 23687784 (Version 4)
Quarter: 2024Q2

REPORT INFORMATION
  Report Type: Report from Study
  Country: DE (occurrence: DE)
  Receive Date: 20240329
  Receipt Date: 20240419
  Transmission Date: 20240716
  Serious: Yes (Life-Threatening, Hospitalization, Disabling, Other)
  Sender: FDA-Public Use
  Company Number: DE-KYOWAKIRIN-2024KK006824

PATIENT

DRUGS (17)
  1. MOGAMULIZUMAB [Suspect]
     Active Substance: MOGAMULIZUMAB
     Indication: Cutaneous T-cell lymphoma stage IV
     Dosage: 93 MG (1 MG/KG, CYCLE 1 DAY 1)
     Route: 065
     Dates: start: 20240212
  2. MOGAMULIZUMAB [Suspect]
     Active Substance: MOGAMULIZUMAB
     Dosage: 93 MG (1 MG/KG, CYCLE 1 DAY 8)
     Route: 065
     Dates: start: 20240220
  3. MOGAMULIZUMAB [Suspect]
     Active Substance: MOGAMULIZUMAB
     Dosage: 93 MG (1 MG/KG, CYCLE 1 DAY 15)
     Route: 065
     Dates: start: 20240227
  4. MOGAMULIZUMAB [Suspect]
     Active Substance: MOGAMULIZUMAB
     Dosage: 93 MG (1 MG/KG, CYCLE 1 DAY 22)
     Route: 065
     Dates: start: 20240305
  5. MOGAMULIZUMAB [Suspect]
     Active Substance: MOGAMULIZUMAB
     Dosage: 90 MG (1 MG/KG, CYCLE 2 DAY 1)
     Route: 065
     Dates: start: 20240312
  6. MOGAMULIZUMAB [Suspect]
     Active Substance: MOGAMULIZUMAB
     Dosage: UNK, (CYCLE 2 DAY 15)
     Route: 065
     Dates: start: 20240326
  7. METFORMIN [Concomitant]
     Active Substance: METFORMIN HYDROCHLORIDE
     Indication: Product used for unknown indication
     Dosage: 5 MG, BID (TWICE DAILY)
     Route: 065
  8. RAMIPRIL [Concomitant]
     Active Substance: RAMIPRIL
     Indication: Product used for unknown indication
     Dosage: 5 MG, BID (TWICE DAILY)
     Route: 065
  9. LORATADINE [Concomitant]
     Active Substance: LORATADINE
     Indication: Cutaneous T-cell lymphoma
     Dosage: 10 MG, BID (TWICE DAILY)
     Route: 065
  10. LERCANIDIPINE HYDROCHLORIDE [Concomitant]
     Active Substance: LERCANIDIPINE HYDROCHLORIDE
     Indication: Product used for unknown indication
     Dosage: 10 MG, BID (TWICE DAILY)
     Route: 065
  11. AVODART [Concomitant]
     Active Substance: DUTASTERIDE
     Indication: Prophylaxis
     Dosage: 0.5 MG, QD (ONCE DAILY)
     Route: 065
  12. ATORVASTATIN [Concomitant]
     Active Substance: ATORVASTATIN
     Indication: Product used for unknown indication
     Dosage: 30 MG, QD (ONCE DAILY)
     Route: 065
  13. LANTUS [Concomitant]
     Active Substance: INSULIN GLARGINE
     Indication: Product used for unknown indication
     Dosage: 3600 E. QD (ONCE DAILY)
     Route: 065
  14. ACTRAPID [Concomitant]
     Active Substance: INSULIN HUMAN
     Indication: Product used for unknown indication
     Dosage: 1200 E. PRN (AS NEEDED)
     Route: 065
  15. TAMSULOSIN HYDROCHLORIDE [Concomitant]
     Active Substance: TAMSULOSIN HYDROCHLORIDE
     Indication: Prophylaxis
     Dosage: 0.5 MG, QD (ONCE DAILY)
     Route: 065
  16. GLIMEPIRIDE [Concomitant]
     Active Substance: GLIMEPIRIDE
     Indication: Product used for unknown indication
     Dosage: 1 MG, BID (TWICE DAILY)
     Route: 065
  17. PREDNISOLONE [Concomitant]
     Active Substance: PREDNISOLONE
     Indication: Cutaneous T-cell lymphoma
     Dosage: UNK, OTHER
     Route: 065

REACTIONS (1)
  - Tumour lysis syndrome [Unknown]

NARRATIVE: CASE EVENT DATE: 20240320
